FAERS Safety Report 8533903-7 (Version None)
Quarter: 2012Q3

REPORT INFORMATION
  Report Type: 
  Country: None (occurrence: None)
  Receive Date: 20120724
  Receipt Date: 20120713
  Transmission Date: 20120928
  Serious: Yes (Other)
  Sender: FDA-Public Use
  Company Number: JP-VERTEX PHARMACEUTICALS INC.-AE-2012-010614

PATIENT
  Age: 60 Year
  Sex: Male

DRUGS (11)
  1. REBETOL [Concomitant]
     Route: 048
     Dates: start: 20120223, end: 20120501
  2. PEG-INTRON [Concomitant]
     Indication: HEPATITIS C
     Route: 058
     Dates: start: 20120106
  3. DIOVAN [Concomitant]
     Route: 048
  4. DIOVAN [Concomitant]
     Route: 048
     Dates: start: 20120105
  5. DIOVAN [Concomitant]
     Route: 048
  6. REBETOL [Concomitant]
     Indication: HEPATITIS C
     Route: 048
     Dates: start: 20120106, end: 20120120
  7. REBETOL [Concomitant]
     Route: 048
     Dates: start: 20120121, end: 20120222
  8. EPADEL S [Concomitant]
     Route: 048
     Dates: start: 20120106
  9. TELAVIC (TELAPREVIR) [Suspect]
     Indication: HEPATITIS C
     Route: 048
     Dates: start: 20120106, end: 20120112
  10. REBETOL [Concomitant]
     Route: 048
     Dates: start: 20120502
  11. TELAVIC (TELAPREVIR) [Suspect]
     Route: 048
     Dates: start: 20120113, end: 20120202

REACTIONS (1)
  - WHITE BLOOD CELL COUNT DECREASED [None]
